FAERS Safety Report 11019903 (Version 1)
Quarter: 2015Q2

REPORT INFORMATION
  Report Type: Spontaneous
  Country: US (occurrence: US)
  Receive Date: 20150412
  Receipt Date: 20150412
  Transmission Date: 20150821
  Serious: No
  Sender: FDA-Public Use
  Company Number: US-ASTRAZENECA-2015SE33701

PATIENT
  Sex: Female

DRUGS (2)
  1. ARIMIDEX [Suspect]
     Active Substance: ANASTROZOLE
     Indication: BREAST CANCER
     Route: 048
     Dates: start: 201311
  2. AROMASIN [Concomitant]
     Active Substance: EXEMESTANE

REACTIONS (3)
  - Paraesthesia [Unknown]
  - Hair growth abnormal [Unknown]
  - Blood cholesterol increased [Unknown]
